FAERS Safety Report 5402797-0 (Version None)
Quarter: 2007Q3

REPORT INFORMATION
  Report Type: 
  Country: None (occurrence: None)
  Receive Date: 20070801
  Receipt Date: 20070724
  Transmission Date: 20080115
  Serious: Yes (Death)
  Sender: FDA-Public Use
  Company Number: HQWYE222825JUL07

PATIENT
  Sex: Male
  Weight: 53.57 kg

DRUGS (33)
  1. RAPAMUNE [Suspect]
     Indication: HEART TRANSPLANT
     Route: 048
     Dates: start: 20060313
  2. RAPAMUNE [Suspect]
     Indication: ARTERIAL DISORDER
  3. PREDNISONE [Concomitant]
     Indication: HEART TRANSPLANT
     Route: 048
     Dates: start: 20060301
  4. PREDNISONE [Concomitant]
     Indication: ARTERIAL DISORDER
  5. CELLCEPT [Concomitant]
     Indication: HEART TRANSPLANT
     Route: 048
     Dates: start: 20060301
  6. CELLCEPT [Concomitant]
     Indication: ARTERIAL DISORDER
  7. ALENDRONATE SODIUM [Concomitant]
     Dosage: DOSE UNKNOWN
     Route: 065
  8. AMBIEN [Concomitant]
     Dosage: DOSE UNKNOWN
     Route: 065
  9. INSULIN [Concomitant]
     Dosage: DOSE UNKNOWN
     Route: 065
  10. BACTRIM [Concomitant]
     Dosage: DOSE UNKNOWN
     Route: 065
  11. CALCITONIN-SALMON [Concomitant]
     Dosage: DOSE UNKNOWN
     Route: 065
  12. VITAMIN D [Concomitant]
     Route: 065
  13. CALCIUM CHLORIDE [Concomitant]
     Dosage: DOSE UNKNOWN
     Route: 065
  14. CREON [Concomitant]
     Dosage: DOSE UNKNOWN
     Route: 065
  15. DESYREL [Concomitant]
     Dosage: DOSE UNKNOWN
     Route: 065
  16. LASIX [Concomitant]
     Dosage: DOSE UNKNOWN
     Route: 065
  17. GABAPENTIN [Concomitant]
     Dosage: DOSE UNKNOWN
     Route: 065
  18. PHENYTOIN SODIUM [Concomitant]
     Dosage: DOSE UNKNOWN
     Route: 065
  19. ACETAMINOPHEN AND OXYCODONE HCL [Concomitant]
     Dosage: DOSE UNKNOWN
     Route: 065
  20. OMEPRAZOLE [Concomitant]
     Dosage: DOSE UNKNOWN
     Route: 065
  21. MULTI-VITAMINS [Concomitant]
     Dosage: DOSE UNKNOWN
     Route: 065
  22. MAG-OX [Concomitant]
     Dosage: DOSE UNKNOWN
     Route: 065
  23. LISINOPRIL [Concomitant]
     Dosage: DOSE UNKNOWN
     Route: 065
  24. LOMOTIL [Concomitant]
     Dosage: DOSE UNKNOWN
     Route: 065
  25. ISOSORBIDE MONONITRATE [Concomitant]
     Dosage: DOSE UNKNOWN
     Route: 065
  26. LEVSIN [Concomitant]
     Dosage: DOSE UNKNOWN
     Route: 060
  27. LIPITOR [Concomitant]
     Dosage: DOSE UNKNOWN
     Route: 065
  28. TRICOR [Concomitant]
     Dosage: DOSE UNKNOWN
     Route: 065
  29. TOPROL-XL [Concomitant]
     Dosage: DOSE UNKNOWN
     Route: 065
  30. REQUIP [Concomitant]
     Dosage: DOSE UNKNOWN
     Route: 065
  31. PLAVIX [Concomitant]
     Dosage: DOSE UNKNOWN
     Route: 065
  32. PROGRAF [Concomitant]
     Indication: HEART TRANSPLANT
     Route: 048
     Dates: start: 20060301
  33. PROGRAF [Concomitant]
     Indication: ARTERIAL DISORDER

REACTIONS (2)
  - CARDIOMYOPATHY [None]
  - MYOCARDIAL INFARCTION [None]
